FAERS Safety Report 23378755 (Version 1)
Quarter: 2024Q1

REPORT INFORMATION
  Report Type: Spontaneous
  Country: US (occurrence: None)
  Receive Date: 20240108
  Receipt Date: 20240108
  Transmission Date: 20240410
  Serious: Yes (Death)
  Sender: FDA-Public Use
  Company Number: None

PATIENT
  Age: 52 Year
  Sex: Female

DRUGS (1)
  1. MYCOPHENOLATE MOFETIL [Suspect]
     Active Substance: MYCOPHENOLATE MOFETIL
     Indication: Dermatomyositis
     Dosage: FREQUENCY : EVERY 12 HOURS;?OTHER ROUTE : G TUBE;?
     Route: 050
     Dates: start: 202311

REACTIONS (1)
  - Small intestine carcinoma metastatic [None]

NARRATIVE: CASE EVENT DATE: 20240102
